FAERS Safety Report 24605730 (Version 3)
Quarter: 2024Q4

REPORT INFORMATION
  Report Type: Spontaneous
  Country: JP (occurrence: JP)
  Receive Date: 20241111
  Receipt Date: 20241230
  Transmission Date: 20250114
  Serious: Yes (Death)
  Sender: CARA THERAPEUTICS
  Company Number: JP-CARA THERAPEUTICS, INC.-2024-00485-JP

PATIENT
  Age: 76 Year
  Sex: Male

DRUGS (9)
  1. KORSUVA [Suspect]
     Active Substance: DIFELIKEFALIN ACETATE
     Indication: Pruritus
     Dosage: 25 ?G (25 ?G/   )
     Route: 042
     Dates: start: 202404, end: 20241012
  2. LANSOPRAZOLE [Concomitant]
     Active Substance: LANSOPRAZOLE
  3. FEXOFENADINE HYDROCHLORIDE [Concomitant]
     Active Substance: FEXOFENADINE HYDROCHLORIDE
  4. LANTHANUM CARBONATE [Concomitant]
     Active Substance: LANTHANUM CARBONATE
  5. TENELIGLIPTIN [Concomitant]
     Active Substance: TENELIGLIPTIN
  6. BIO-THREE [Concomitant]
     Active Substance: HERBALS
  7. ROZEREM [Concomitant]
     Active Substance: RAMELTEON
  8. RISPERDAL [Concomitant]
     Active Substance: RISPERIDONE
  9. AMEZINIUM METILSULFATE [Concomitant]
     Active Substance: AMEZINIUM METILSULFATE

REACTIONS (1)
  - Pneumonia aspiration [Fatal]

NARRATIVE: CASE EVENT DATE: 20240918
